FAERS Safety Report 7584064-2 (Version None)
Quarter: 2011Q2

REPORT INFORMATION
  Report Type: 
  Country: None (occurrence: None)
  Receive Date: 20110628
  Receipt Date: 20110628
  Transmission Date: 20111010
  Serious: Yes (Other)
  Sender: FDA-Public Use
  Company Number: None

PATIENT
  Sex: Female

DRUGS (1)
  1. ALPRAZOLAM [Suspect]
     Indication: MAJOR DEPRESSION
     Dosage: 1 TAB QID ORAL 047
     Route: 048
     Dates: start: 20060301, end: 20060424

REACTIONS (2)
  - AGITATION [None]
  - DRUG INEFFECTIVE [None]
